FAERS Safety Report 6865735-X (Version None)
Quarter: 2010Q3

REPORT INFORMATION
  Report Type: 
  Country: None (occurrence: None)
  Receive Date: 20100721
  Receipt Date: 20091125
  Transmission Date: 20110219
  Serious: No
  Sender: FDA-Public Use
  Company Number: US-PFIZER INC-2008037465

PATIENT
  Sex: Female
  Weight: 79.4 kg

DRUGS (3)
  1. CHANTIX [Suspect]
     Indication: SMOKING CESSATION THERAPY
     Dosage: UNK
     Dates: start: 20071127, end: 20071201
  2. CHANTIX [Suspect]
     Dosage: UNK
     Dates: start: 20090610, end: 20090601
  3. CLONIDINE [Concomitant]
     Dosage: UNK

REACTIONS (2)
  - BALANCE DISORDER [None]
  - HEAD DISCOMFORT [None]
